FAERS Safety Report 13854327 (Version 1)
Quarter: 2017Q3

REPORT INFORMATION
  Report Type: Spontaneous
  Country: US (occurrence: US)
  Receive Date: 20170809
  Receipt Date: 20170809
  Transmission Date: 20171127
  Serious: No
  Sender: FDA-Public Use
  Company Number: US-BIOGEN-2017BI00442580

PATIENT
  Sex: Female

DRUGS (2)
  1. AVONEX [Suspect]
     Active Substance: INTERFERON BETA-1A
     Indication: MULTIPLE SCLEROSIS
     Route: 065
     Dates: start: 20050619, end: 20060519
  2. AVONEX [Suspect]
     Active Substance: INTERFERON BETA-1A
     Route: 065
     Dates: start: 20070622, end: 20081017

REACTIONS (5)
  - Drug intolerance [Recovered/Resolved with Sequelae]
  - Flushing [Recovered/Resolved]
  - Palpitations [Recovered/Resolved]
  - Atypical pneumonia [Recovered/Resolved]
  - Fall [Recovered/Resolved]
